FAERS Safety Report 4755679-1 (Version None)
Quarter: 2005Q3

REPORT INFORMATION
  Report Type: 
  Country: None (occurrence: None)
  Receive Date: 20050830
  Receipt Date: 20050627
  Transmission Date: 20060218
  Serious: No
  Sender: FDA-Public Use
  Company Number: US-BRISTOL-MYERS SQUIBB COMPANY-13018130

PATIENT
  Sex: Female

DRUGS (3)
  1. ABILIFY [Suspect]
  2. PROZAC [Interacting]
  3. RISPERDAL [Concomitant]

REACTIONS (2)
  - BRUXISM [None]
  - DRUG INTERACTION [None]
